FAERS Safety Report 8991283 (Version 1)
Quarter: 2012Q4

REPORT INFORMATION
  Report Type: Report from Study
  Country: US (occurrence: US)
  Receive Date: 20121231
  Receipt Date: 20121231
  Transmission Date: 20130627
  Serious: Yes (Other)
  Sender: FDA-Public Use
  Company Number: US-ROCHE-1172231

PATIENT
  Age: 50 Year
  Sex: Female
  Weight: 56.8 kg

DRUGS (4)
  1. BEVACIZUMAB [Suspect]
     Indication: OVARIAN CANCER
     Dosage: over 30-90 mins on Day 1, Last Administered Date: 08/Oct/2012
     Route: 042
     Dates: start: 20120714, end: 20121029
  2. PACLITAXEL [Suspect]
     Indication: OVARIAN CANCER
     Dosage: over 1 hr on Days 1, 8, 15, Last Administered Date: 22/Oct/2012
     Route: 042
  3. CARBOPLATIN [Suspect]
     Indication: OVARIAN CANCER
     Dosage: AUC = 6,over 30 mins on Day 1, Last Administered Date: 08/Oct/2012
     Route: 042
  4. VELIPARIB [Suspect]
     Indication: OVARIAN CANCER
     Dosage: on Days -2-5, Last Administered Date: 28/Oct/2012
     Route: 048

REACTIONS (1)
  - Vascular access complication [Recovering/Resolving]
